FAERS Safety Report 9809389 (Version 2)
Quarter: 2014Q1

REPORT INFORMATION
  Report Type: Spontaneous
  Country: US (occurrence: US)
  Receive Date: 20140110
  Receipt Date: 20140116
  Transmission Date: 20141002
  Serious: Yes (Hospitalization, Other)
  Sender: FDA-Public Use
  Company Number: US-ASTRAZENECA-2014SE00673

PATIENT
  Age: 788 Month
  Sex: Female
  Weight: 72.6 kg

DRUGS (7)
  1. BRILINTA [Suspect]
     Indication: CORONARY ARTERIAL STENT INSERTION
     Route: 048
     Dates: start: 20131112
  2. BRILINTA [Suspect]
     Indication: ANGIOGRAM
     Route: 048
     Dates: start: 20131112
  3. LANTUS [Concomitant]
     Indication: DIABETES MELLITUS
  4. NOVALOG [Concomitant]
     Indication: DIABETES MELLITUS
  5. LYRICA [Concomitant]
     Indication: NEURALGIA
  6. METOPROLOL [Concomitant]
     Indication: BLOOD PRESSURE ABNORMAL
  7. ASPIRIN [Concomitant]
     Indication: CARDIAC DISORDER

REACTIONS (8)
  - Hypotension [Unknown]
  - Vaginal haemorrhage [Not Recovered/Not Resolved]
  - Blood urine present [Unknown]
  - Urinary bladder haemorrhage [Unknown]
  - Localised infection [Unknown]
  - Pain [Unknown]
  - Malaise [Unknown]
  - Abdominal pain upper [Unknown]
